FAERS Safety Report 10691381 (Version 6)
Quarter: 2017Q2

REPORT INFORMATION
  Report Type: Spontaneous
  Country: JP (occurrence: JP)
  Receive Date: 20150105
  Receipt Date: 20170425
  Transmission Date: 20170829
  Serious: Yes (Death)
  Sender: FDA-Public Use
  Company Number: JP-UNITED THERAPEUTICS-UNT-2014-012869

PATIENT
  Age: 37 Year
  Sex: Female
  Weight: 37 kg

DRUGS (26)
  1. ADCIRCA [Suspect]
     Active Substance: TADALAFIL
     Indication: PULMONARY ARTERIAL HYPERTENSION
  2. LUPRAC [Concomitant]
     Active Substance: TORSEMIDE
     Indication: RIGHT VENTRICULAR FAILURE
     Dosage: UNK
     Route: 048
     Dates: end: 20141225
  3. GLIVEC [Concomitant]
     Active Substance: IMATINIB MESYLATE
     Indication: PULMONARY ARTERIAL HYPERTENSION
     Dosage: UNK
     Route: 048
     Dates: end: 20141203
  4. PROPOFOL. [Concomitant]
     Active Substance: PROPOFOL
     Indication: SEDATION
     Dosage: UNK
     Route: 041
     Dates: start: 20141203, end: 20141226
  5. FLUITRAN [Concomitant]
     Active Substance: TRICHLORMETHIAZIDE
     Indication: RIGHT VENTRICULAR FAILURE
     Dosage: UNK
     Route: 048
     Dates: end: 20141225
  6. CODEINE [Concomitant]
     Active Substance: CODEINE
     Indication: ASTHMA
     Dosage: UNK
     Route: 048
     Dates: end: 20141210
  7. NAOTAMIN [Suspect]
     Active Substance: NAFAMOSTAT
     Indication: PULMONARY ARTERIAL HYPERTENSION
  8. LASIX [Concomitant]
     Active Substance: FUROSEMIDE
     Indication: RIGHT VENTRICULAR FAILURE
     Dosage: UNK
     Dates: end: 20141225
  9. ALESION [Concomitant]
     Active Substance: EPINASTINE HYDROCHLORIDE
     Indication: ASTHMA
     Dosage: UNK
     Route: 048
     Dates: end: 20141206
  10. TRACLEER [Suspect]
     Active Substance: BOSENTAN
     Indication: PULMONARY ARTERIAL HYPERTENSION
  11. SAMSCA [Concomitant]
     Active Substance: TOLVAPTAN
     Indication: ATRIAL SEPTAL DEFECT
     Dosage: 3.75 MG, UNK
     Route: 048
     Dates: start: 20141115, end: 20141209
  12. TRACLEER [Suspect]
     Active Substance: BOSENTAN
     Indication: ATRIAL SEPTAL DEFECT
     Dosage: 62.5 MG, BID
     Route: 048
     Dates: start: 20050701, end: 20141225
  13. ADCIRCA [Suspect]
     Active Substance: TADALAFIL
     Indication: ATRIAL SEPTAL DEFECT
     Dosage: 20 MG, BID
     Route: 048
     Dates: start: 20100819, end: 20141225
  14. NAOTAMIN [Suspect]
     Active Substance: NAFAMOSTAT
     Indication: ATRIAL SEPTAL DEFECT
     Dosage: UNK
     Route: 041
     Dates: start: 20141203, end: 20141226
  15. NEXIUM [Concomitant]
     Active Substance: ESOMEPRAZOLE MAGNESIUM
     Indication: GASTROOESOPHAGEAL REFLUX DISEASE
     Dosage: UNK
     Route: 048
     Dates: end: 20141210
  16. SLOW-K [Concomitant]
     Active Substance: POTASSIUM CHLORIDE
     Indication: HYPOKALAEMIA
     Dosage: UNK
     Route: 048
     Dates: end: 20141209
  17. REMODULIN [Suspect]
     Active Substance: TREPROSTINIL
     Indication: ATRIAL SEPTAL DEFECT
  18. MIDAZOLAM [Concomitant]
     Active Substance: MIDAZOLAM HYDROCHLORIDE
     Indication: SEDATION
     Dosage: UNK
     Route: 041
     Dates: start: 20141203, end: 20141226
  19. PREDONINE [Concomitant]
     Active Substance: PREDNISOLONE
     Indication: HYPOXIA
     Dosage: UNK
     Dates: end: 20141225
  20. ZYLORIC [Concomitant]
     Active Substance: ALLOPURINOL
     Indication: HYPERURICAEMIA
     Dosage: UNK
     Route: 048
     Dates: end: 20141210
  21. MUCOSTA [Concomitant]
     Active Substance: REBAMIPIDE
     Indication: CHRONIC GASTRITIS
     Dosage: UNK
     Route: 048
     Dates: end: 20141210
  22. REMODULIN [Suspect]
     Active Substance: TREPROSTINIL
     Indication: PULMONARY ARTERIAL HYPERTENSION
     Dosage: 0.1146 ?G/KG, CONTINUING
     Route: 041
     Dates: start: 20141203, end: 20141226
  23. EPOPROSTENOL. [Suspect]
     Active Substance: EPOPROSTENOL
     Indication: PRODUCT USED FOR UNKNOWN INDICATION
  24. DOPAMINE [Concomitant]
     Active Substance: DOPAMINE\DOPAMINE HYDROCHLORIDE
     Indication: ATRIAL SEPTAL DEFECT
     Dosage: UNK
     Route: 041
     Dates: start: 20141203, end: 20141226
  25. PAXIL [Concomitant]
     Active Substance: PAROXETINE HYDROCHLORIDE
     Indication: ANXIETY DISORDER
     Dosage: UNK
     Route: 048
     Dates: end: 20141210
  26. ALDACTONE A [Concomitant]
     Active Substance: SPIRONOLACTONE
     Indication: RIGHT VENTRICULAR FAILURE
     Dosage: UNK
     Route: 048
     Dates: end: 20141210

REACTIONS (1)
  - Pulmonary arterial hypertension [Fatal]

NARRATIVE: CASE EVENT DATE: 20141226
